FAERS Safety Report 16279017 (Version 1)
Quarter: 2019Q2

REPORT INFORMATION
  Report Type: Spontaneous
  Country: US (occurrence: US)
  Receive Date: 20190506
  Receipt Date: 20190506
  Transmission Date: 20190711
  Serious: No
  Sender: FDA-Public Use
  Company Number: US-TEIKOKU PHARMA USA-TPU2019-00388

PATIENT
  Sex: Female
  Weight: 69.01 kg

DRUGS (7)
  1. GLUCOSAMINE [Concomitant]
     Active Substance: GLUCOSAMINE
  2. ASPIRIN. [Concomitant]
     Active Substance: ASPIRIN
  3. DILTIAZEM. [Concomitant]
     Active Substance: DILTIAZEM
     Route: 048
  4. CALCIUM [Concomitant]
     Active Substance: CALCIUM
  5. ELIQUIS [Concomitant]
     Active Substance: APIXABAN
     Route: 048
  6. HYDROCODONE-ACETAMINOPHEN [Concomitant]
     Active Substance: ACETAMINOPHEN\HYDROCODONE
     Route: 048
  7. LIDODERM [Suspect]
     Active Substance: LIDOCAINE
     Indication: BACK PAIN
     Dosage: APPLY 1 PATCH BY TRANSDERMAL ROUTE ONCE DAILY (MAY WEAR UP TO 12 HOURS) FOR 7 DAYS

REACTIONS (1)
  - Drug ineffective for unapproved indication [Unknown]

NARRATIVE: CASE EVENT DATE: 2019
